FAERS Safety Report 6867605-X (Version None)
Quarter: 2010Q3

REPORT INFORMATION
  Report Type: 
  Country: None (occurrence: None)
  Receive Date: 20100722
  Receipt Date: 20090715
  Transmission Date: 20110219
  Serious: No
  Sender: FDA-Public Use
  Company Number: US-BAUSCH-2009BL003579

PATIENT
  Age: 48 Year
  Sex: Male
  Weight: 102 kg

DRUGS (3)
  1. OPCON-A [Suspect]
     Indication: EYE IRRITATION
     Route: 047
     Dates: start: 20090713, end: 20090713
  2. RENU MULTIPLUS MULTI-PURPOSE SOLUTION [Suspect]
     Dates: end: 20090713
  3. ADVIL LIQUI-GELS [Concomitant]
     Indication: HEADACHE
     Route: 048
     Dates: start: 20090713, end: 20090713

REACTIONS (1)
  - HYPERSENSITIVITY [None]
